FAERS Safety Report 23731008 (Version 1)
Quarter: 2024Q2

REPORT INFORMATION
  Report Type: Spontaneous
  Country: BR (occurrence: BR)
  Receive Date: 20240411
  Receipt Date: 20240411
  Transmission Date: 20240715
  Serious: Yes (Death, Hospitalization, Other)
  Sender: FDA-Public Use
  Company Number: BR-AMGEN-BRASP2024068299

PATIENT
  Age: 47 Year
  Sex: Male

DRUGS (2)
  1. RITUXIMAB [Suspect]
     Active Substance: RITUXIMAB
     Indication: Non-Hodgkin^s lymphoma
     Dosage: UNK
     Route: 065
  2. FILGRASTIM [Suspect]
     Active Substance: FILGRASTIM
     Indication: Myelosuppression
     Dosage: UNK
     Route: 065

REACTIONS (14)
  - Death [Fatal]
  - Pulmonary thrombosis [Unknown]
  - Deep vein thrombosis [Unknown]
  - Pseudomonas infection [Unknown]
  - Acinetobacter infection [Unknown]
  - Myelosuppression [Unknown]
  - Pneumocystis jirovecii pneumonia [Unknown]
  - Acute kidney injury [Unknown]
  - Hyperkalaemia [Unknown]
  - Nosocomial infection [Unknown]
  - Proteus infection [Unknown]
  - Staphylococcal infection [Unknown]
  - Metabolic acidosis [Unknown]
  - Off label use [Unknown]
